FAERS Safety Report 20012564 (Version 1)
Quarter: 2021Q4

REPORT INFORMATION
  Report Type: Spontaneous
  Country: US (occurrence: US)
  Receive Date: 20211029
  Receipt Date: 20211029
  Transmission Date: 20220303
  Serious: Yes (Other)
  Sender: FDA-Public Use
  Company Number: US-SPECGX-T202102407

PATIENT
  Age: 9 Month
  Sex: Male

DRUGS (1)
  1. FENTANYL TRANSDERMAL SYSTEM [Suspect]
     Active Substance: FENTANYL
     Indication: Product used for unknown indication

REACTIONS (7)
  - Brain oedema [Unknown]
  - Hypoglycaemia [Unknown]
  - Hydrocephalus [Unknown]
  - Hypoxia [Unknown]
  - Overdose [Recovering/Resolving]
  - Accidental exposure to product by child [Recovering/Resolving]
  - Product use issue [Recovering/Resolving]
